FAERS Safety Report 18037680 (Version 3)
Quarter: 2020Q3

REPORT INFORMATION
  Report Type: Spontaneous
  Country: US (occurrence: US)
  Receive Date: 20200717
  Receipt Date: 20200827
  Transmission Date: 20201103
  Serious: Yes (Other)
  Sender: FDA-Public Use
  Company Number: US-SA-2020SA185134

PATIENT

DRUGS (5)
  1. DUPIXENT [Suspect]
     Active Substance: DUPILUMAB
     Indication: DERMATITIS ATOPIC
     Dosage: 300 MG, OTHER
     Route: 058
     Dates: start: 202003
  2. OXYCODONE [Concomitant]
     Active Substance: OXYCODONE
  3. CARISOPRODOL. [Concomitant]
     Active Substance: CARISOPRODOL
  4. ONDANSETRON [Concomitant]
     Active Substance: ONDANSETRON
  5. IBUPROFEN. [Concomitant]
     Active Substance: IBUPROFEN

REACTIONS (5)
  - Restless legs syndrome [Unknown]
  - Restlessness [Unknown]
  - Nephrolithiasis [Unknown]
  - Urinary tract obstruction [Unknown]
  - Blood urine present [Unknown]

NARRATIVE: CASE EVENT DATE: 20200415
